FAERS Safety Report 11645928 (Version 1)
Quarter: 2015Q4

REPORT INFORMATION
  Report Type: Spontaneous
  Country: US (occurrence: US)
  Receive Date: 20151020
  Receipt Date: 20151020
  Transmission Date: 20160304
  Serious: No
  Sender: FDA-Public Use
  Company Number: US-ROCHE-1600878

PATIENT
  Sex: Female
  Weight: 108.96 kg

DRUGS (3)
  1. TYVASO [Concomitant]
     Active Substance: TREPROSTINIL
  2. TRAMADOL. [Concomitant]
     Active Substance: TRAMADOL
  3. ESBRIET [Suspect]
     Active Substance: PIRFENIDONE
     Indication: IDIOPATHIC PULMONARY FIBROSIS
     Dosage: 3 CAPSULES THRICE DAILY
     Route: 048
     Dates: start: 20150716

REACTIONS (6)
  - Headache [Unknown]
  - Nausea [Unknown]
  - Dysuria [Unknown]
  - Decreased appetite [Unknown]
  - Back pain [Unknown]
  - Constipation [Unknown]
